FAERS Safety Report 16773282 (Version 4)
Quarter: 2020Q2

REPORT INFORMATION
  Report Type: Spontaneous
  Country: BR (occurrence: BR)
  Receive Date: 20190904
  Receipt Date: 20200630
  Transmission Date: 20200713
  Serious: Yes (Hospitalization)
  Sender: FDA-Public Use
  Company Number: BR-GLAXOSMITHKLINE-BR2018GSK235496

PATIENT
  Sex: Female
  Weight: 96 kg

DRUGS (1)
  1. BENLYSTA [Suspect]
     Active Substance: BELIMUMAB
     Indication: SYSTEMIC LUPUS ERYTHEMATOSUS
     Dosage: UNK
     Dates: start: 20180815

REACTIONS (8)
  - Inappropriate schedule of product administration [Unknown]
  - Product availability issue [Unknown]
  - Hospitalisation [Unknown]
  - Influenza [Unknown]
  - Limb injury [Unknown]
  - Wound [Unknown]
  - Social problem [Unknown]
  - Product dose omission [Unknown]
